FAERS Safety Report 4648647-1 (Version None)
Quarter: 2005Q2

REPORT INFORMATION
  Report Type: 
  Country: None (occurrence: None)
  Receive Date: 20050427
  Receipt Date: 20050414
  Transmission Date: 20051028
  Serious: Yes (Other)
  Sender: FDA-Public Use
  Company Number: 2005061841

PATIENT
  Sex: Female

DRUGS (1)
  1. DEPO-PROVERA [Suspect]
     Indication: CONTRACEPTION
     Dosage: 150 MG (150 MG), INTRAMUSCULAR
     Route: 030

REACTIONS (3)
  - DRUG EXPOSURE DURING PREGNANCY [None]
  - HEARING IMPAIRED [None]
  - PREGNANCY WITH INJECTABLE CONTRACEPTIVE [None]
